FAERS Safety Report 7033920-2 (Version None)
Quarter: 2010Q4

REPORT INFORMATION
  Report Type: 
  Country: None (occurrence: None)
  Receive Date: 20101007
  Receipt Date: 20100929
  Transmission Date: 20110411
  Serious: Yes (Other)
  Sender: FDA-Public Use
  Company Number: SE-AMGEN-QUU442592

PATIENT
  Age: 39 Year
  Sex: Male

DRUGS (4)
  1. ENBREL [Suspect]
     Indication: RHEUMATOID ARTHRITIS
     Dosage: DOSE 50 MG WEEKLY
     Dates: start: 20080501, end: 20100301
  2. ENBREL [Suspect]
     Dosage: DOSE 50 MG WEEKLY
     Dates: start: 20100101
  3. ALVEDON [Concomitant]
  4. IPREN [Concomitant]

REACTIONS (3)
  - CONCOMITANT DISEASE PROGRESSION [None]
  - ORAL PAIN [None]
  - OTOSCLEROSIS [None]
